FAERS Safety Report 14898706 (Version 1)
Quarter: 2018Q2

REPORT INFORMATION
  Report Type: Report from Study
  Country: US (occurrence: US)
  Receive Date: 20180515
  Receipt Date: 20180515
  Transmission Date: 20180711
  Serious: Yes (Hospitalization)
  Sender: FDA-Public Use
  Company Number: US-EXELIXIS-XL18418013949

PATIENT
  Age: 54 Year
  Sex: Male
  Weight: 85.7 kg

DRUGS (13)
  1. ATEZOLIZUMAB. [Suspect]
     Active Substance: ATEZOLIZUMAB
     Indication: HORMONE-REFRACTORY PROSTATE CANCER
     Dosage: 1200 MG, Q3WEEKS
     Route: 042
     Dates: start: 20180424
  2. PAROXETINE. [Concomitant]
     Active Substance: PAROXETINE
  3. ESOMEPRAZOLE [Concomitant]
     Active Substance: ESOMEPRAZOLE
  4. LEUPROLIDE [Concomitant]
     Active Substance: LEUPROLIDE
  5. RIZATRIPTAN. [Concomitant]
     Active Substance: RIZATRIPTAN
  6. MULTIVITAMINS [Concomitant]
     Active Substance: VITAMINS
  7. PROBIOTIC [Concomitant]
     Active Substance: PROBIOTICS NOS
  8. TRAMADOL. [Concomitant]
     Active Substance: TRAMADOL
  9. ALPRAZOLAM. [Concomitant]
     Active Substance: ALPRAZOLAM
  10. TADALAFIL [Concomitant]
     Active Substance: TADALAFIL
  11. XL184 [Suspect]
     Active Substance: CABOZANTINIB
     Indication: HORMONE-REFRACTORY PROSTATE CANCER
     Dosage: 40 MG, QD
     Route: 048
     Dates: start: 20180424
  12. NAPROXEN. [Concomitant]
     Active Substance: NAPROXEN
  13. VITAMIN B2 [Concomitant]
     Active Substance: RIBOFLAVIN

REACTIONS (2)
  - Dyspnoea [Recovering/Resolving]
  - Chest pain [Recovering/Resolving]

NARRATIVE: CASE EVENT DATE: 20180505
